FAERS Safety Report 13577329 (Version 2)
Quarter: 2017Q3

REPORT INFORMATION
  Report Type: Spontaneous
  Country: IL (occurrence: IL)
  Receive Date: 20170524
  Receipt Date: 20170802
  Transmission Date: 20171127
  Serious: Yes (Hospitalization, Other)
  Sender: FDA-Public Use
  Company Number: IL-BIOMARINAP-IL-2017-114085

PATIENT
  Age: 27 Year
  Sex: Female
  Weight: 40.44 kg

DRUGS (5)
  1. BUDESONIDE. [Concomitant]
     Active Substance: BUDESONIDE
     Indication: LUNG DISORDER
     Dosage: 1 MG, QID
     Route: 050
  2. WARFARIN [Concomitant]
     Active Substance: WARFARIN
     Indication: PRODUCT USED FOR UNKNOWN INDICATION
     Dosage: 2.5 MG, QD
     Route: 048
  3. NAGLAZYME [Suspect]
     Active Substance: GALSULFASE
     Indication: MUCOPOLYSACCHARIDOSIS VI
     Dosage: 40 MG, QW
     Route: 042
     Dates: start: 20160502
  4. IPRATROPIUM BROMIDE. [Concomitant]
     Active Substance: IPRATROPIUM BROMIDE
     Indication: LUNG DISORDER
     Dosage: 0.5 MG, QID
     Route: 050
  5. SALBUTAMOL [Concomitant]
     Active Substance: ALBUTEROL
     Indication: LUNG DISORDER
     Dosage: 2.5 MG, QID
     Route: 050

REACTIONS (4)
  - Pulmonary hypertension [Recovering/Resolving]
  - Sleep apnoea syndrome [Recovering/Resolving]
  - Mitral valve stenosis [Recovering/Resolving]
  - Cardiac failure congestive [Recovering/Resolving]

NARRATIVE: CASE EVENT DATE: 20170522
